FAERS Safety Report 8713128 (Version 3)
Quarter: 2012Q4

REPORT INFORMATION
  Report Type: Report from Study
  Country: US (occurrence: US)
  Receive Date: 20120808
  Receipt Date: 20121019
  Transmission Date: 20130627
  Serious: Yes (Death)
  Sender: FDA-Public Use
  Company Number: US-CELGENEUS-163-21880-12080329

PATIENT
  Age: 74 Year
  Sex: Male
  Weight: 82.4 kg

DRUGS (27)
  1. REVLIMID [Suspect]
     Indication: MULTIPLE MYELOMA
     Dosage: 25 Milligram
     Route: 048
     Dates: start: 20110815, end: 20120709
  2. CARFILZOMIB [Suspect]
     Indication: MULTIPLE MYELOMA
     Dosage: 38 Milligram
     Route: 065
     Dates: start: 20110815, end: 20120730
  3. CARFILZOMIB [Suspect]
     Dosage: 51 Milligram
     Route: 065
     Dates: start: 20110822
  4. CARFILZOMIB [Suspect]
     Dosage: 53 Milligram
     Route: 065
     Dates: start: 20110912
  5. CARFILZOMIB [Suspect]
     Dosage: 52 Milligram
     Route: 065
     Dates: start: 20111205
  6. CARFILZOMIB [Suspect]
     Dosage: 53 Milligram
     Route: 065
     Dates: start: 20120103
  7. CARFILZOMIB [Suspect]
     Dosage: 52 Milligram
     Route: 065
     Dates: start: 20120227
  8. CARFILZOMIB [Suspect]
     Dosage: 51 Milligram
     Route: 065
     Dates: start: 20120423, end: 20120730
  9. DEXAMETHASONE [Suspect]
     Indication: MULTIPLE MYELOMA
     Dosage: 40 Milligram
     Route: 065
     Dates: start: 20110815
  10. DEXAMETHASONE [Suspect]
     Dosage: 36 Milligram
     Route: 065
     Dates: start: 20111128
  11. DEXAMETHASONE [Suspect]
     Dosage: 40 Milligram
     Route: 065
     Dates: start: 20111205
  12. DEXAMETHASONE [Suspect]
     Dosage: 40 Milligram
     Route: 065
     Dates: start: 20120402, end: 20120611
  13. DEXAMETHASONE [Suspect]
     Dosage: 20 Milligram
     Route: 065
     Dates: start: 20120716, end: 20120730
  14. CALCIUM [Concomitant]
     Indication: HYPOCALCEMIA
     Dosage: 1200 Milligram
     Route: 048
     Dates: start: 20111220
  15. CARVEDILOL [Concomitant]
     Indication: ATRIAL FIBRILLATION
     Dosage: 6.25 Milligram
     Route: 048
     Dates: start: 20110210
  16. CARVEDILOL [Concomitant]
     Indication: HYPERTENSION
  17. COMPAZINE [Concomitant]
     Indication: NAUSEA PROPHYLAXIS
     Dosage: 60 Milligram
     Route: 065
     Dates: start: 20110815
  18. LASIX [Concomitant]
     Indication: PEDAL EDEMA
     Dosage: 40 Milligram
     Route: 048
     Dates: start: 20120130
  19. LASIX [Concomitant]
     Indication: DYSPNEA
  20. METFORMIN [Concomitant]
     Indication: TYPE 2 DIABETES MELLITUS
     Dosage: 2000 Milligram
     Route: 048
     Dates: start: 20101123
  21. OMEPRAZOLE [Concomitant]
     Indication: DRUG THERAPY
     Dosage: 20 Milligram
     Route: 048
     Dates: start: 20110813
  22. POTASSIUM CHLORIDE [Concomitant]
     Indication: PROPHYLAXIS
     Dosage: 20 Milliequivalents
     Route: 048
     Dates: start: 20120130
  23. VALACYCLOVIR [Concomitant]
     Indication: ANTIVIRAL PROPHYLAXIS
     Dosage: 500 Milligram
     Route: 048
     Dates: start: 20110813
  24. VICODIN [Concomitant]
     Indication: BACK PAIN
     Dosage: 5/500mg
     Route: 048
     Dates: start: 20110815
  25. WARFARIN [Concomitant]
     Indication: ANTICOAGULANT THERAPY
     Dosage: 10 Milligram
     Route: 048
     Dates: start: 20110608
  26. WARFARIN [Concomitant]
     Indication: ANTIPLATELET THERAPY
  27. ZOMETA [Concomitant]
     Indication: PROPHYLAXIS
     Dosage: 4 Milligram
     Route: 041
     Dates: start: 20110318

REACTIONS (1)
  - Cardiac arrest [Fatal]
